FAERS Safety Report 5224724-1 (Version None)
Quarter: 2007Q1

REPORT INFORMATION
  Report Type: 
  Country: None (occurrence: None)
  Receive Date: 20070131
  Receipt Date: 20070129
  Transmission Date: 20070707
  Serious: Yes (Hospitalization)
  Sender: FDA-Public Use
  Company Number: FRWYE388129JAN07

PATIENT
  Age: 59 Year
  Sex: Male

DRUGS (1)
  1. RHINADVIL [Suspect]
     Dosage: UNKNOWN
     Route: 048
     Dates: start: 20061201, end: 20061201

REACTIONS (4)
  - BLOOD PRESSURE INCREASED [None]
  - FEELING ABNORMAL [None]
  - PARAESTHESIA [None]
  - TRANSIENT ISCHAEMIC ATTACK [None]
